FAERS Safety Report 10801270 (Version 1)
Quarter: 2015Q1

REPORT INFORMATION
  Report Type: Spontaneous
  Country: US (occurrence: US)
  Receive Date: 20150217
  Receipt Date: 20150217
  Transmission Date: 20150721
  Serious: Yes (Death, Life-Threatening)
  Sender: FDA-Public Use
  Company Number: PHHY2015US015056

PATIENT
  Age: 91 Year
  Sex: Female

DRUGS (1)
  1. HYDRALAZINE [Suspect]
     Active Substance: HYDRALAZINE HYDROCHLORIDE
     Indication: PRODUCT USED FOR UNKNOWN INDICATION
     Route: 065

REACTIONS (12)
  - Urinary tract infection enterococcal [Unknown]
  - Pulmonary alveolar haemorrhage [Unknown]
  - Pulmonary renal syndrome [Not Recovered/Not Resolved]
  - Spur cell anaemia [Unknown]
  - Anaemia [Unknown]
  - Haemoptysis [Unknown]
  - Haematuria [Unknown]
  - Glomerulonephritis [Unknown]
  - Death [Fatal]
  - Acute kidney injury [Not Recovered/Not Resolved]
  - Vasculitis necrotising [Unknown]
  - Hypoxia [Unknown]
